FAERS Safety Report 7947090-7 (Version None)
Quarter: 2011Q4

REPORT INFORMATION
  Report Type: 
  Country: None (occurrence: None)
  Receive Date: 20111129
  Receipt Date: 20111118
  Transmission Date: 20120403
  Serious: Yes (Life-Threatening, Hospitalization)
  Sender: FDA-Public Use
  Company Number: CA-BAYER-2011-111609

PATIENT
  Age: 15 Year
  Sex: Female
  Weight: 47.619 kg

DRUGS (3)
  1. YASMIN [Suspect]
     Dosage: 1 DF, QD
     Route: 048
  2. REFRESH TEARS [Concomitant]
  3. FLUOROMETHOLONE [Concomitant]

REACTIONS (4)
  - TACHYCARDIA [None]
  - DYSPNOEA [None]
  - PULMONARY EMBOLISM [None]
  - FATIGUE [None]
